FAERS Safety Report 15238544 (Version 1)
Quarter: 2018Q3

REPORT INFORMATION
  Report Type: Spontaneous
  Country: RO (occurrence: RO)
  Receive Date: 20180803
  Receipt Date: 20180803
  Transmission Date: 20181010
  Serious: Yes (Hospitalization, Other)
  Sender: FDA-Public Use
  Company Number: RO-PFIZER INC-2018306602

PATIENT
  Age: 67 Year
  Sex: Male
  Weight: 82 kg

DRUGS (7)
  1. SORTIS [Concomitant]
     Active Substance: ATORVASTATIN
     Dosage: UNK UNK, 1X/DAY, EVENING
  2. EUTHYROX [Concomitant]
     Active Substance: LEVOTHYROXINE SODIUM
     Dosage: 100 UG, 1X/DAY, MORNING
  3. TENAXUM [Concomitant]
     Active Substance: RILMENIDINE
     Dosage: UNK UNK, 1X/DAY, EVENING
  4. ATORIS [Concomitant]
     Active Substance: ATORVASTATIN CALCIUM
     Dosage: UNK UNK, 1X/DAY, MORNING
  5. ASPENTER [Concomitant]
     Active Substance: ASPIRIN
     Dosage: UNK UNK, 1X/DAY, MORNING
  6. SUTENT [Suspect]
     Active Substance: SUNITINIB MALATE
     Indication: RENAL CANCER METASTATIC
     Dosage: 37.5 UNK, UNK
     Dates: start: 201210
  7. LERIDIP [Concomitant]
     Dosage: UNK UNK, 1X/DAY, MORNING

REACTIONS (2)
  - Pulmonary oedema [Unknown]
  - Myocardial infarction [Unknown]

NARRATIVE: CASE EVENT DATE: 20180722
